FAERS Safety Report 25978113 (Version 2)
Quarter: 2025Q4

REPORT INFORMATION
  Report Type: Spontaneous
  Country: EU (occurrence: EU)
  Receive Date: 20251030
  Receipt Date: 20251117
  Transmission Date: 20260118
  Serious: Yes (Death)
  Sender: EMD SERONO INC
  Company Number: None

PATIENT
  Age: 1 Year
  Sex: Female
  Weight: 2 kg

DRUGS (3)
  1. LEVOTHYROXINE [Suspect]
     Active Substance: LEVOTHYROXINE
     Indication: Product used for unknown indication
     Dosage: DRUG TAKEN BY MOTHER
  2. CANNABIS SATIVA FLOWERING TOP [Suspect]
     Active Substance: CANNABIS SATIVA FLOWERING TOP
     Indication: Product used for unknown indication
     Dosage: 3 TO 4 JOINTS/DAY AT THE BEGINNING OF PREGNANCY THEN 1 TO 2/DAY AT THE END OF PREGNANCY.
  3. PAROXETINE HYDROCHLORIDE [Suspect]
     Active Substance: PAROXETINE HYDROCHLORIDE
     Indication: Product used for unknown indication
     Dosage: 20 MG THROUGHOUT PREGNANCY?DRUG TAKEN BY MOTHER

REACTIONS (6)
  - Alloimmunisation [Fatal]
  - Anaemia neonatal [Fatal]
  - Cardiogenic shock [Fatal]
  - Neonatal seizure [Fatal]
  - Foetal growth restriction [Recovered/Resolved]
  - Maternal exposure during pregnancy [Recovered/Resolved]
